FAERS Safety Report 19236069 (Version 3)
Quarter: 2021Q3

REPORT INFORMATION
  Report Type: Report from Study
  Country: CO (occurrence: CO)
  Receive Date: 20210510
  Receipt Date: 20210709
  Transmission Date: 20211014
  Serious: Yes (Other)
  Sender: FDA-Public Use
  Company Number: CO-KYOWAKIRIN-2020BKK022953

PATIENT

DRUGS (22)
  1. CRYSVITA [Suspect]
     Active Substance: BUROSUMAB-TWZA
     Dosage: 30 MG (1 IN 14 D)
     Route: 058
     Dates: start: 20210528
  2. CRYSVITA [Suspect]
     Active Substance: BUROSUMAB-TWZA
     Dosage: 30 MG (1 IN 14 D)
     Route: 058
     Dates: start: 20210514, end: 20210514
  3. CRYSVITA [Suspect]
     Active Substance: BUROSUMAB-TWZA
     Dosage: 30 MG (1 IN 14 D)
     Route: 058
     Dates: start: 20201006, end: 20201006
  4. CRYSVITA [Suspect]
     Active Substance: BUROSUMAB-TWZA
     Dosage: 30 MG (1 IN 14 D)
     Route: 058
     Dates: start: 20200917, end: 20200917
  5. CRYSVITA [Suspect]
     Active Substance: BUROSUMAB-TWZA
     Dosage: 30 MG (1 IN 14 D)
     Route: 058
     Dates: start: 20200904, end: 20200904
  6. CRYSVITA [Suspect]
     Active Substance: BUROSUMAB-TWZA
     Dosage: 30 MG (1 IN 14 D)
     Route: 058
     Dates: start: 20200724, end: 20200724
  7. CRYSVITA [Suspect]
     Active Substance: BUROSUMAB-TWZA
     Dosage: 30 MG (1 IN 14 D)
     Route: 058
     Dates: start: 20210106, end: 20210106
  8. CRYSVITA [Suspect]
     Active Substance: BUROSUMAB-TWZA
     Dosage: 30 MG (1 IN 14 D)
     Route: 058
     Dates: start: 20201222, end: 20201222
  9. CRYSVITA [Suspect]
     Active Substance: BUROSUMAB-TWZA
     Dosage: 30 MG (1 IN 14 D)
     Route: 058
     Dates: start: 20210208, end: 20210208
  10. CRYSVITA [Suspect]
     Active Substance: BUROSUMAB-TWZA
     Dosage: 30 MG (1 IN 14 D)
     Route: 058
     Dates: start: 20200821, end: 20200821
  11. CRYSVITA [Suspect]
     Active Substance: BUROSUMAB-TWZA
     Dosage: 30 MG (1 IN 14 D)
     Route: 058
     Dates: start: 20210427, end: 20210427
  12. CRYSVITA [Suspect]
     Active Substance: BUROSUMAB-TWZA
     Dosage: 30 MG (1 IN 14 D)
     Route: 058
     Dates: start: 20210120, end: 20210120
  13. CRYSVITA [Suspect]
     Active Substance: BUROSUMAB-TWZA
     Dosage: 30 MG (1 IN 14 D)
     Route: 058
     Dates: start: 20201207, end: 20201207
  14. CRYSVITA [Suspect]
     Active Substance: BUROSUMAB-TWZA
     Dosage: 30 MG (1 IN 14 D)
     Route: 058
     Dates: start: 20201119, end: 20201119
  15. CRYSVITA [Suspect]
     Active Substance: BUROSUMAB-TWZA
     Dosage: 30 MG (1 IN 14 D)
     Route: 058
     Dates: start: 20201020, end: 20201020
  16. CRYSVITA [Suspect]
     Active Substance: BUROSUMAB-TWZA
     Dosage: 30 MG (1 IN 14 D)
     Route: 058
     Dates: start: 20210413, end: 20210413
  17. CRYSVITA [Suspect]
     Active Substance: BUROSUMAB-TWZA
     Dosage: 30 MG (1 IN 14 D)
     Route: 058
     Dates: start: 20200710, end: 20200710
  18. CRYSVITA [Suspect]
     Active Substance: BUROSUMAB-TWZA
     Dosage: 30 MG (1 IN 14 D)
     Route: 058
     Dates: start: 20210222, end: 20210222
  19. CRYSVITA [Suspect]
     Active Substance: BUROSUMAB-TWZA
     Dosage: 30 MG (1 IN 14 D)
     Route: 058
     Dates: start: 20200806, end: 20200806
  20. CRYSVITA [Suspect]
     Active Substance: BUROSUMAB-TWZA
     Indication: HEREDITARY HYPOPHOSPHATAEMIC RICKETS
     Dosage: 30 MG (1 IN 14 D)
     Route: 058
     Dates: start: 20201105, end: 20201105
  21. CRYSVITA [Suspect]
     Active Substance: BUROSUMAB-TWZA
     Dosage: 30 MG (1 IN 14 D)
     Route: 058
     Dates: start: 20210329, end: 20210329
  22. CRYSVITA [Suspect]
     Active Substance: BUROSUMAB-TWZA
     Dosage: 30 MG (1 IN 14 D)
     Route: 058
     Dates: start: 20210308, end: 20210308

REACTIONS (12)
  - Taste disorder [Recovered/Resolved]
  - Anxiety [Unknown]
  - Fatigue [Recovered/Resolved]
  - Nausea [Recovered/Resolved]
  - Headache [Recovered/Resolved]
  - Dizziness [Recovered/Resolved]
  - Inappropriate schedule of product administration [Unknown]
  - Tremor [Recovered/Resolved]
  - Throat tightness [Recovered/Resolved]
  - Abdominal discomfort [Recovered/Resolved]
  - Asphyxia [Recovered/Resolved]
  - Thirst [Recovered/Resolved]

NARRATIVE: CASE EVENT DATE: 20201111
